FAERS Safety Report 4396106-6 (Version None)
Quarter: 2004Q2

REPORT INFORMATION
  Report Type: 
  Country: None (occurrence: None)
  Receive Date: 20040621
  Receipt Date: 20031121
  Transmission Date: 20050107
  Serious: Yes (Death)
  Sender: FDA-Public Use
  Company Number: USA-2003-0011034

PATIENT
  Age: 16 Year
  Sex: Female
  Weight: 67.6 kg

DRUGS (6)
  1. OXYCONTIN [Suspect]
  2. CLONAZEPAM [Suspect]
  3. PROPOXYPHENE (DEXTROPROPOXYPHENE) [Suspect]
  4. CANNABIS (CANNABIS) [Suspect]
  5. NICOTINE [Suspect]
  6. CAFFEINE (CAFFEINE) [Suspect]

REACTIONS (1)
  - ACCIDENTAL OVERDOSE [None]
